FAERS Safety Report 9275700 (Version 2)
Quarter: 2013Q3

REPORT INFORMATION
  Report Type: Spontaneous
  Country: IE (occurrence: IE)
  Receive Date: 20130507
  Receipt Date: 20130819
  Transmission Date: 20140515
  Serious: Yes (Death)
  Sender: FDA-Public Use
  Company Number: IE-NOVOPROD-376995

PATIENT
  Age: 60 Year
  Sex: Female
  Weight: 107.8 kg

DRUGS (10)
  1. VICTOZA [Suspect]
     Indication: TYPE 2 DIABETES MELLITUS
     Dosage: 1.2 MG, QD
     Route: 058
     Dates: start: 20110525, end: 20130330
  2. METFORMIN [Concomitant]
     Dosage: 1000 MG, TID
     Route: 065
  3. LANTUS [Concomitant]
     Dosage: 40 IU, QD
  4. PRAVASTATIN [Concomitant]
     Dosage: 20 MG, QD
  5. IMIPRAMINE [Concomitant]
     Dosage: 25 MG, UNK
  6. ZOLPIDEM [Concomitant]
     Dosage: 10 MG, QD
  7. ZESTRIL [Concomitant]
     Dosage: 20 MG, QD
  8. COMBIVENT [Concomitant]
  9. PULMICORT [Concomitant]
  10. APIDRA [Concomitant]
     Dosage: 21, 21 AND 28U DAILY

REACTIONS (2)
  - Respiratory failure [Fatal]
  - Myocardial infarction [Fatal]
